FAERS Safety Report 25205997 (Version 2)
Quarter: 2025Q2

REPORT INFORMATION
  Report Type: Report from Study
  Country: IT (occurrence: IT)
  Receive Date: 20250417
  Receipt Date: 20250422
  Transmission Date: 20250717
  Serious: Yes (Hospitalization)
  Sender: ABBVIE
  Company Number: IT-ABBVIE-6232766

PATIENT
  Age: 76 Year
  Sex: Female

DRUGS (25)
  1. VENETOCLAX [Suspect]
     Active Substance: VENETOCLAX
     Indication: Acute myeloid leukaemia
     Route: 048
     Dates: start: 20241112, end: 20241205
  2. VENETOCLAX [Suspect]
     Active Substance: VENETOCLAX
     Indication: Acute myeloid leukaemia
     Route: 048
     Dates: start: 20241101, end: 20241103
  3. VENETOCLAX [Suspect]
     Active Substance: VENETOCLAX
     Indication: Acute myeloid leukaemia
     Route: 048
     Dates: start: 20241209, end: 20241229
  4. OMEPRAZOLE [Concomitant]
     Active Substance: OMEPRAZOLE
     Indication: Gastrointestinal disorder prophylaxis
     Route: 042
     Dates: start: 20250108, end: 20250113
  5. AZACITIDINE [Suspect]
     Active Substance: AZACITIDINE
     Indication: Acute myeloid leukaemia
     Route: 065
     Dates: start: 20241101, end: 20241103
  6. AZACITIDINE [Suspect]
     Active Substance: AZACITIDINE
     Indication: Acute myeloid leukaemia
     Route: 065
     Dates: start: 20250310, end: 20250314
  7. AZACITIDINE [Suspect]
     Active Substance: AZACITIDINE
     Indication: Acute myeloid leukaemia
     Route: 065
     Dates: start: 20241216, end: 20241217
  8. AZACITIDINE [Suspect]
     Active Substance: AZACITIDINE
     Indication: Acute myeloid leukaemia
     Route: 065
     Dates: start: 20241111, end: 20241115
  9. AZACITIDINE [Suspect]
     Active Substance: AZACITIDINE
     Indication: Acute myeloid leukaemia
     Route: 065
     Dates: start: 20250317, end: 20250318
  10. Daflon [Concomitant]
     Indication: Vascular disorder prophylaxis
     Dosage: 1000 MILLIGRAM
     Route: 048
     Dates: start: 20250129, end: 20250207
  11. Daflon [Concomitant]
     Indication: Vascular disorder prophylaxis
     Route: 048
     Dates: start: 20250110, end: 20250129
  12. FOLIC ACID [Concomitant]
     Active Substance: FOLIC ACID
     Indication: Anaemia prophylaxis
     Dates: end: 20250114
  13. FOLIC ACID [Concomitant]
     Active Substance: FOLIC ACID
     Indication: Anaemia prophylaxis
     Route: 048
     Dates: start: 20250228
  14. MAALOX ANTACID [Concomitant]
     Active Substance: ALUMINUM HYDROXIDE\DIMETHICONE\MAGNESIUM HYDROXIDE
     Indication: Gastrointestinal disorder prophylaxis
     Route: 048
     Dates: start: 20250108, end: 20250129
  15. ACETAMINOPHEN [Concomitant]
     Active Substance: ACETAMINOPHEN
     Indication: Antipyresis
     Route: 048
     Dates: start: 20250205
  16. LEVOFLOXACIN [Concomitant]
     Active Substance: LEVOFLOXACIN
     Indication: Antipyresis
     Route: 048
     Dates: start: 20250205
  17. INDAPAMIDE\PERINDOPRIL [Concomitant]
     Active Substance: INDAPAMIDE\PERINDOPRIL
     Indication: Hypertension
     Route: 048
     Dates: start: 20250207
  18. Ringer Acetat [Concomitant]
     Indication: Fluid replacement
     Route: 042
     Dates: start: 20250107, end: 20250107
  19. PREDNISONE [Concomitant]
     Active Substance: PREDNISONE
     Indication: Antiinflammatory therapy
     Route: 048
     Dates: start: 20250207
  20. PREDNISONE [Concomitant]
     Active Substance: PREDNISONE
     Indication: Antiinflammatory therapy
     Route: 048
     Dates: start: 20250129, end: 20250206
  21. POTASSIUM CHLORIDE [Concomitant]
     Active Substance: POTASSIUM CHLORIDE
     Indication: Prophylaxis
     Route: 042
     Dates: start: 20250110, end: 20250110
  22. POTASSIUM CHLORIDE [Concomitant]
     Active Substance: POTASSIUM CHLORIDE
     Indication: Prophylaxis
     Route: 042
     Dates: start: 20250113, end: 20250113
  23. POTASSIUM CHLORIDE [Concomitant]
     Active Substance: POTASSIUM CHLORIDE
     Indication: Prophylaxis
     Route: 042
     Dates: start: 20250114, end: 20250116
  24. POTASSIUM CHLORIDE [Concomitant]
     Active Substance: POTASSIUM CHLORIDE
     Indication: Prophylaxis
     Route: 042
     Dates: start: 20250119, end: 20250122
  25. POTASSIUM CHLORIDE [Concomitant]
     Active Substance: POTASSIUM CHLORIDE
     Indication: Prophylaxis
     Route: 042
     Dates: start: 20250125, end: 20250126

REACTIONS (2)
  - Fall [Recovered/Resolved]
  - Myalgia [Unknown]

NARRATIVE: CASE EVENT DATE: 20250208
